FAERS Safety Report 9049129 (Version 3)
Quarter: 2013Q4

REPORT INFORMATION
  Report Type: Spontaneous
  Country: US (occurrence: US)
  Receive Date: 20130205
  Receipt Date: 20131007
  Transmission Date: 20140711
  Serious: Yes (Other)
  Sender: FDA-Public Use
  Company Number: US-PFIZER INC-2013046411

PATIENT
  Age: 72 Year
  Sex: Male
  Weight: 109 kg

DRUGS (4)
  1. LIPITOR [Suspect]
     Indication: BLOOD TRIGLYCERIDES INCREASED
     Dosage: UNK
  2. ACCUPRIL [Suspect]
     Indication: HYPERTENSION
     Dosage: 20 MG, 2X/DAY (BY CUTTING ONE 40 MG TABLET IN HALF)
     Route: 048
     Dates: end: 2013
  3. QUINAPRIL HCL [Suspect]
     Indication: HYPERTENSION
     Dosage: UNK
     Dates: start: 2013
  4. LOVAZA [Concomitant]
     Indication: BLOOD TRIGLYCERIDES INCREASED
     Dosage: UNK

REACTIONS (7)
  - Loss of consciousness [Unknown]
  - Blood glucose abnormal [Unknown]
  - Syncope [Unknown]
  - Malaise [Unknown]
  - High density lipoprotein abnormal [Unknown]
  - Dizziness [Unknown]
  - Paranoia [Unknown]
